FAERS Safety Report 7624798-4 (Version None)
Quarter: 2011Q3

REPORT INFORMATION
  Report Type: 
  Country: None (occurrence: None)
  Receive Date: 20110720
  Receipt Date: 20110715
  Transmission Date: 20111222
  Serious: Yes (Other)
  Sender: FDA-Public Use
  Company Number: JP-PFIZER INC-2011139270

PATIENT
  Age: 62 Year
  Sex: Female

DRUGS (10)
  1. NEORAL [Concomitant]
     Indication: PROPHYLAXIS
     Dosage: 50 MG, 2X/DAY
     Route: 048
     Dates: start: 20110619
  2. ROCALTROL [Concomitant]
     Indication: OSTEOPOROSIS PROPHYLAXIS
     Dosage: 0.5 UG, 2X/DAY
     Route: 048
  3. SOLU-MEDROL [Suspect]
     Dosage: 1000 MG DAILY
     Route: 042
     Dates: start: 20110521, end: 20110523
  4. SOLU-MEDROL [Suspect]
     Dosage: 1000 MG DAILY
     Route: 042
     Dates: start: 20110528, end: 20110530
  5. SOLU-MEDROL [Suspect]
     Dosage: 1000 MG DAILY
     Route: 042
     Dates: start: 20110604, end: 20110606
  6. BETASERON [Concomitant]
     Indication: PROPHYLAXIS
     Dosage: 9600000 IU, ALTERNATE DAY
     Route: 058
     Dates: start: 20060101
  7. LIORESAL [Concomitant]
     Indication: HYPOAESTHESIA
     Dosage: 5 MG, 1X/DAY
     Route: 048
  8. LOXONIN [Concomitant]
     Indication: PYREXIA
     Dosage: 60 MG, 1X/DAY
     Route: 048
  9. MAGNESIUM OXIDE [Concomitant]
     Indication: CONSTIPATION
     Dosage: 0.5 G, 1X/DAY
     Route: 048
  10. LIPITOR [Concomitant]
     Indication: HYPERLIPIDAEMIA
     Dosage: 10 MG, 1X/DAY
     Route: 048

REACTIONS (2)
  - LEUKOPENIA [None]
  - NEUTROPENIA [None]
